FAERS Safety Report 5873962-3 (Version None)
Quarter: 2008Q3

REPORT INFORMATION
  Report Type: 
  Country: None (occurrence: None)
  Receive Date: 20080908
  Receipt Date: 20080903
  Transmission Date: 20090109
  Serious: Yes (Other)
  Sender: FDA-Public Use
  Company Number: US-MERCK-0808USA04903

PATIENT
  Age: 60 Year
  Sex: Female

DRUGS (4)
  1. VYTORIN [Suspect]
     Indication: HYPERLIPIDAEMIA
     Route: 048
     Dates: start: 20070701
  2. ALLEGRA [Concomitant]
     Route: 065
  3. RHINOCORT [Concomitant]
     Route: 065
  4. UBIDECARENONE [Concomitant]
     Route: 065

REACTIONS (1)
  - BREAST CANCER [None]
